FAERS Safety Report 7729517-9 (Version None)
Quarter: 2011Q3

REPORT INFORMATION
  Report Type: 
  Country: None (occurrence: None)
  Receive Date: 20110906
  Receipt Date: 20110824
  Transmission Date: 20111222
  Serious: Yes (Other)
  Sender: FDA-Public Use
  Company Number: JP-NAPPMUNDI-MAG-2011-0001607

PATIENT
  Age: 88 Year
  Sex: Female

DRUGS (1)
  1. BUPRENORPHINE [Suspect]
     Indication: PAIN
     Dosage: 5 MCG, Q1H
     Route: 062
     Dates: start: 20110820, end: 20110822

REACTIONS (5)
  - DYSPHONIA [None]
  - NAUSEA [None]
  - ABDOMINAL PAIN [None]
  - THROAT TIGHTNESS [None]
  - VOMITING [None]
